FAERS Safety Report 8315784-X (Version None)
Quarter: 2012Q2

REPORT INFORMATION
  Report Type: 
  Country: None (occurrence: None)
  Receive Date: 20120426
  Receipt Date: 20120413
  Transmission Date: 20120825
  Serious: Yes (Hospitalization, Other)
  Sender: FDA-Public Use
  Company Number: ES-MYLANLABS-2012S1008001

PATIENT
  Age: 75 Year
  Sex: Male

DRUGS (1)
  1. BACLOFEN [Suspect]
     Indication: POLYNEUROPATHY
     Route: 065

REACTIONS (4)
  - TREMOR [None]
  - MYOCLONUS [None]
  - MIOSIS [None]
  - PUPIL FIXED [None]
